FAERS Safety Report 7803022-3 (Version None)
Quarter: 2011Q4

REPORT INFORMATION
  Report Type: 
  Country: None (occurrence: None)
  Receive Date: 20111007
  Receipt Date: 20110927
  Transmission Date: 20120403
  Serious: Yes (Hospitalization)
  Sender: FDA-Public Use
  Company Number: US-BAYER-2011-027214

PATIENT
  Age: 35 Year
  Sex: Female
  Weight: 63.492 kg

DRUGS (4)
  1. CITALOPRAM HYDROBROMIDE [Concomitant]
     Indication: DEPRESSION
     Dosage: UNK
     Dates: start: 20060601, end: 20070801
  2. CELEXA [Concomitant]
  3. ULTRAM [Concomitant]
  4. YASMIN [Suspect]
     Indication: CONTRACEPTION
     Dosage: UNK
     Route: 048
     Dates: start: 20040320, end: 20080810

REACTIONS (8)
  - ABDOMINAL PAIN [None]
  - CHOLECYSTITIS [None]
  - CHOLECYSTITIS CHRONIC [None]
  - PAIN [None]
  - GALLBLADDER DISORDER [None]
  - ABDOMINAL TENDERNESS [None]
  - FREQUENT BOWEL MOVEMENTS [None]
  - INJURY [None]
